FAERS Safety Report 8117440-X (Version None)
Quarter: 2012Q1

REPORT INFORMATION
  Report Type: 
  Country: None (occurrence: None)
  Receive Date: 20120207
  Receipt Date: 20120123
  Transmission Date: 20120608
  Serious: Yes (Hospitalization, Other)
  Sender: FDA-Public Use
  Company Number: GB-RANBAXY-2011R1-45704

PATIENT
  Age: 66 Year
  Sex: Female

DRUGS (9)
  1. CLOZARIL [Suspect]
     Dosage: 425 MG, UNK
     Route: 048
     Dates: start: 20010305
  2. ASPIRIN [Concomitant]
     Indication: PRODUCT USED FOR UNKNOWN INDICATION
     Dosage: UNK
     Route: 065
  3. LEVOTHYROXINE SODIUM [Concomitant]
     Indication: HYPOTHYROIDISM
     Dosage: 50 UG, UNK
     Route: 048
     Dates: start: 20100101
  4. AMISULPRIDE [Suspect]
     Indication: PRODUCT USED FOR UNKNOWN INDICATION
     Dosage: UNK
     Route: 049
     Dates: start: 20110401
  5. SIMVASTATIN [Suspect]
     Indication: BLOOD CHOLESTEROL INCREASED
     Dosage: 40 MG, UNK
     Route: 048
     Dates: start: 20100101, end: 20110228
  6. CLOZARIL [Suspect]
     Dosage: 425 MG, UNK
     Route: 048
     Dates: start: 20030101, end: 20110228
  7. CLOZARIL [Suspect]
     Dosage: UNK
     Route: 065
     Dates: start: 20111220, end: 20120107
  8. AMISULPRIDE [Suspect]
     Dosage: 300 MG, UNK
     Route: 050
     Dates: start: 20030101, end: 20110228
  9. CLOZARIL [Suspect]
     Indication: SCHIZOPHRENIA
     Dosage: UNK
     Route: 065
     Dates: start: 20110401

REACTIONS (10)
  - ALANINE AMINOTRANSFERASE INCREASED [None]
  - HYPOTHYROIDISM [None]
  - INTERNATIONAL NORMALISED RATIO INCREASED [None]
  - OVARIAN ADENOMA [None]
  - LIVER FUNCTION TEST ABNORMAL [None]
  - HAEMOGLOBIN DECREASED [None]
  - PNEUMONIA [None]
  - BLOOD BILIRUBIN INCREASED [None]
  - BLOOD ALKALINE PHOSPHATASE INCREASED [None]
  - ATRIAL FIBRILLATION [None]
